FAERS Safety Report 6020222-6 (Version None)
Quarter: 2008Q4

REPORT INFORMATION
  Report Type: 
  Country: None (occurrence: None)
  Receive Date: 20081226
  Receipt Date: 20081216
  Transmission Date: 20090506
  Serious: Yes (Hospitalization)
  Sender: FDA-Public Use
  Company Number: PHHY2008GB32193

PATIENT
  Sex: Male

DRUGS (2)
  1. CLOZARIL [Suspect]
     Indication: SCHIZOPHRENIA
     Dosage: UNK
     Dates: start: 20051202
  2. CLOZARIL [Suspect]
     Dosage: 25 MG, UNK

REACTIONS (4)
  - CATATONIA [None]
  - MENTAL DISORDER [None]
  - PALLOR [None]
  - SOMNOLENCE [None]
